FAERS Safety Report 22300475 (Version 5)
Quarter: 2023Q2

REPORT INFORMATION
  Report Type: Spontaneous
  Country: CN (occurrence: CN)
  Receive Date: 20230509
  Receipt Date: 20230530
  Transmission Date: 20230721
  Serious: Yes (Death, Life-Threatening, Hospitalization)
  Sender: FDA-Public Use
  Company Number: CN-002147023-NVSC2023CN105452

PATIENT
  Age: 72 Year
  Sex: Male

DRUGS (4)
  1. COSENTYX [Suspect]
     Active Substance: SECUKINUMAB
     Indication: Psoriasis
     Dosage: UNK(MAR)
     Route: 065
  2. COSENTYX [Suspect]
     Active Substance: SECUKINUMAB
     Dosage: UNK
     Route: 065
  3. COSENTYX [Suspect]
     Active Substance: SECUKINUMAB
     Dosage: UNK
     Route: 065
  4. ALLOPURINOL [Concomitant]
     Active Substance: ALLOPURINOL
     Indication: Gout
     Dosage: UNK
     Route: 065

REACTIONS (51)
  - Death [Fatal]
  - Skin exfoliation [Recovering/Resolving]
  - Blood pressure decreased [Recovering/Resolving]
  - Heart rate decreased [Unknown]
  - Multiple organ dysfunction syndrome [Unknown]
  - Dermatitis exfoliative [Recovering/Resolving]
  - Inflammation [Unknown]
  - Liver injury [Unknown]
  - Rash [Unknown]
  - Acute kidney injury [Unknown]
  - Oedema peripheral [Recovering/Resolving]
  - Face oedema [Recovering/Resolving]
  - Cardiac failure [Unknown]
  - Sinus tachycardia [Unknown]
  - Electrocardiogram Q waves [Unknown]
  - Electrocardiogram ST segment abnormal [Unknown]
  - Electrocardiogram T wave abnormal [Unknown]
  - Myocardial infarction [Unknown]
  - Blood pressure increased [Unknown]
  - Hyperlipidaemia [Unknown]
  - Hypothyroidism [Unknown]
  - Malnutrition [Unknown]
  - Speech disorder [Unknown]
  - Chest discomfort [Unknown]
  - Tachypnoea [Unknown]
  - Dyspnoea [Unknown]
  - Oxygen saturation decreased [Unknown]
  - Decreased appetite [Unknown]
  - Urine flow decreased [Unknown]
  - Ecchymosis [Unknown]
  - Breath sounds abnormal [Unknown]
  - Wheezing [Unknown]
  - Abdominal distension [Unknown]
  - C-reactive protein increased [Unknown]
  - Red blood cell count decreased [Unknown]
  - Haemoglobin decreased [Unknown]
  - Activated partial thromboplastin time shortened [Unknown]
  - Blood uric acid increased [Unknown]
  - Fibrin D dimer increased [Unknown]
  - High density lipoprotein decreased [Unknown]
  - Blood creatine phosphokinase increased [Unknown]
  - Blood lactate dehydrogenase increased [Unknown]
  - Alpha hydroxybutyrate dehydrogenase increased [Unknown]
  - Blood chloride increased [Unknown]
  - Brain natriuretic peptide increased [Unknown]
  - Troponin I increased [Recovering/Resolving]
  - White blood cell count increased [Unknown]
  - Neutrophil count increased [Unknown]
  - Blood creatinine increased [Unknown]
  - Heart rate increased [Unknown]
  - Psoriasis [Recovering/Resolving]

NARRATIVE: CASE EVENT DATE: 20230425
